FAERS Safety Report 8384038-8 (Version None)
Quarter: 2012Q2

REPORT INFORMATION
  Report Type: 
  Country: None (occurrence: None)
  Receive Date: 20120524
  Receipt Date: 20120515
  Transmission Date: 20120825
  Serious: No
  Sender: FDA-Public Use
  Company Number: US-BAYER-2012-049230

PATIENT
  Age: 70 Year
  Sex: Female
  Weight: 63 kg

DRUGS (1)
  1. NAPROXEN SODIUM [Suspect]
     Indication: DYSMENORRHOEA
     Dosage: 1 U, BID
     Route: 048
     Dates: start: 20120514, end: 20120514

REACTIONS (1)
  - INSOMNIA [None]
